FAERS Safety Report 17346893 (Version 1)
Quarter: 2020Q1

REPORT INFORMATION
  Report Type: Report from Study
  Country: US (occurrence: US)
  Receive Date: 20200129
  Receipt Date: 20200129
  Transmission Date: 20200409
  Serious: No
  Sender: FDA-Public Use
  Company Number: US-EXELIXIS-CABO-19021946

PATIENT
  Age: 68 Year
  Sex: Male

DRUGS (8)
  1. CABOMETYX [Suspect]
     Active Substance: CABOZANTINIB S-MALATE
     Indication: METASTASES TO LUNG
  2. AMLODIPINE BESILATE [Concomitant]
     Active Substance: AMLODIPINE BESYLATE
  3. LISINOPRIL. [Concomitant]
     Active Substance: LISINOPRIL
  4. CABOMETYX [Suspect]
     Active Substance: CABOZANTINIB S-MALATE
     Indication: RENAL CELL CARCINOMA STAGE IV
     Dosage: 60 MG, QD (AM WITHOUT FOOD)
     Route: 048
     Dates: start: 201905
  5. CABOMETYX [Suspect]
     Active Substance: CABOZANTINIB S-MALATE
     Indication: METASTASES TO BONE
  6. MULTIVITAMINS, COMBINATIONS [Concomitant]
     Active Substance: VITAMINS
  7. SORBITOL. [Suspect]
     Active Substance: SORBITOL
     Indication: PRODUCT USED FOR UNKNOWN INDICATION
     Dosage: UNK
  8. ATORVASTATIN CALCIUM. [Concomitant]
     Active Substance: ATORVASTATIN CALCIUM

REACTIONS (16)
  - Taste disorder [Not Recovered/Not Resolved]
  - Diarrhoea [Not Recovered/Not Resolved]
  - Pain in extremity [Unknown]
  - Decreased appetite [Not Recovered/Not Resolved]
  - Peripheral swelling [Unknown]
  - Dysphonia [Recovering/Resolving]
  - Headache [Not Recovered/Not Resolved]
  - Abdominal discomfort [Unknown]
  - Fatigue [Not Recovered/Not Resolved]
  - Temperature intolerance [Not Recovered/Not Resolved]
  - Arthralgia [Not Recovered/Not Resolved]
  - Asthenia [Recovering/Resolving]
  - Nausea [Recovering/Resolving]
  - Oral pain [Not Recovered/Not Resolved]
  - Dry mouth [Recovering/Resolving]
  - Dehydration [Recovering/Resolving]

NARRATIVE: CASE EVENT DATE: 20190814
